FAERS Safety Report 8213472-1 (Version None)
Quarter: 2012Q1

REPORT INFORMATION
  Report Type: 
  Country: None (occurrence: None)
  Receive Date: 20120315
  Receipt Date: 20120306
  Transmission Date: 20120608
  Serious: Yes (Hospitalization, Other)
  Sender: FDA-Public Use
  Company Number: JP-AMGEN-JPNCT2012004342

PATIENT
  Sex: Male
  Weight: 88 kg

DRUGS (3)
  1. PANITUMUMAB [Suspect]
     Indication: LARGE INTESTINE CARCINOMA
     Dosage: 500 MG, Q2WK
     Route: 041
     Dates: start: 20111114, end: 20111222
  2. FLUOROURACIL [Concomitant]
     Indication: LARGE INTESTINE CARCINOMA
     Dosage: UNK
     Route: 041
     Dates: start: 20111114
  3. LEVOLEUCOVORIN CALCIUM [Concomitant]
     Indication: LARGE INTESTINE CARCINOMA
     Dosage: UNK
     Route: 041
     Dates: start: 20111114

REACTIONS (3)
  - CONVULSION [None]
  - ROAD TRAFFIC ACCIDENT [None]
  - DYSPNOEA [None]
